FAERS Safety Report 4371256-9 (Version None)
Quarter: 2004Q2

REPORT INFORMATION
  Report Type: 
  Country: None (occurrence: None)
  Receive Date: 20040603
  Receipt Date: 20040521
  Transmission Date: 20050107
  Serious: Yes (Hospitalization, Other)
  Sender: FDA-Public Use
  Company Number: 2004214818US

PATIENT

DRUGS (1)
  1. CELEBREX [Suspect]

REACTIONS (2)
  - CARCINOMA [None]
  - GASTROINTESTINAL HAEMORRHAGE [None]
